FAERS Safety Report 9520374 (Version 1)
Quarter: 2013Q3

REPORT INFORMATION
  Report Type: Spontaneous
  Country: US (occurrence: US)
  Receive Date: 20130912
  Receipt Date: 20130912
  Transmission Date: 20140515
  Serious: Yes (Hospitalization)
  Sender: FDA-Public Use
  Company Number: US-B.I. PHARMACEUTICALS,INC./RIDGEFIELD-2013-BI-27695BP

PATIENT
  Sex: Female

DRUGS (6)
  1. SPIRIVA [Suspect]
     Indication: CHRONIC OBSTRUCTIVE PULMONARY DISEASE
     Dosage: 18 MCG
     Route: 055
     Dates: start: 2003
  2. SYMBICORT [Concomitant]
     Indication: ASTHMA
  3. LIPITOR [Concomitant]
     Indication: BLOOD CHOLESTEROL
  4. WARFARIN [Concomitant]
     Indication: ATRIAL FIBRILLATION
  5. SINGULAIR [Concomitant]
     Indication: ASTHMA
  6. PEPCID [Concomitant]
     Indication: GASTRIC DISORDER

REACTIONS (2)
  - Cerebrovascular accident [Recovered/Resolved]
  - Atrial fibrillation [Recovered/Resolved]
